FAERS Safety Report 10145736 (Version 2)
Quarter: 2014Q2

REPORT INFORMATION
  Report Type: Spontaneous
  Country: GB (occurrence: GB)
  Receive Date: 20140501
  Receipt Date: 20140509
  Transmission Date: 20141212
  Serious: Yes (Other)
  Sender: FDA-Public Use
  Company Number: PHFR2014GB003092

PATIENT
  Sex: Female

DRUGS (10)
  1. ESTRADERM MX [Suspect]
     Indication: MENOPAUSAL SYMPTOMS
     Dosage: 100 UKN, BIW
     Route: 062
     Dates: start: 201206
  2. CALCIUM [Concomitant]
     Dosage: UNK UKN, UNK
  3. LIOTHYRONINE [Concomitant]
     Dosage: UNK UKN, UNK
  4. LEVOTHYROXINE [Concomitant]
     Dosage: UNK UKN, UNK
  5. BECONASE [Concomitant]
     Dosage: UNK UKN, UNK
  6. BUSCOPAN [Concomitant]
     Dosage: UNK UKN, UNK
  7. NATURAL TEARS [Concomitant]
     Dosage: UNK UKN, UNK
  8. LACRI LUBE [Concomitant]
     Dosage: UNK UKN, UNK
  9. OMEPRAZOLE [Concomitant]
     Dosage: UNK UKN, UNK
  10. DEHYDROEPIANDROSTERONE [Concomitant]
     Dosage: UNK UKN, UNK

REACTIONS (5)
  - Application site reaction [Not Recovered/Not Resolved]
  - Application site pain [Not Recovered/Not Resolved]
  - Product quality issue [Not Recovered/Not Resolved]
  - Application site pruritus [Unknown]
  - Application site erythema [Unknown]
